FAERS Safety Report 14911780 (Version 1)
Quarter: 2018Q2

REPORT INFORMATION
  Report Type: Spontaneous
  Country: US (occurrence: US)
  Receive Date: 20180518
  Receipt Date: 20180518
  Transmission Date: 20180711
  Serious: Yes (Other)
  Sender: FDA-Public Use
  Company Number: US-ROCHE-2123590

PATIENT
  Age: 56 Year
  Sex: Female
  Weight: 113.5 kg

DRUGS (2)
  1. BENADRYL [Concomitant]
     Active Substance: DIPHENHYDRAMINE HYDROCHLORIDE
     Dosage: ONGOING: UNKNOWN
     Route: 065
  2. GAZYVA [Suspect]
     Active Substance: OBINUTUZUMAB
     Indication: CHRONIC LYMPHOCYTIC LEUKAEMIA
     Dosage: ONGOING: NO
     Route: 042
     Dates: start: 201604, end: 20180424

REACTIONS (5)
  - Cardiac failure congestive [Not Recovered/Not Resolved]
  - Erythema [Not Recovered/Not Resolved]
  - Sepsis [Unknown]
  - Hepatic function abnormal [Not Recovered/Not Resolved]
  - Dyspnoea [Not Recovered/Not Resolved]

NARRATIVE: CASE EVENT DATE: 201802
